FAERS Safety Report 7584178-7 (Version None)
Quarter: 2011Q2

REPORT INFORMATION
  Report Type: 
  Country: None (occurrence: None)
  Receive Date: 20110630
  Receipt Date: 20110623
  Transmission Date: 20111010
  Serious: Yes (Hospitalization)
  Sender: FDA-Public Use
  Company Number: FR-PFIZER INC-2011108940

PATIENT
  Age: 45 Year
  Sex: Male

DRUGS (4)
  1. IRINOTECAN HCL [Suspect]
     Indication: GLIOBLASTOMA
     Dosage: 240 MG, UNK
     Route: 042
     Dates: start: 20101228, end: 20110419
  2. AVASTIN [Suspect]
     Indication: GLIOBLASTOMA
     Dosage: 820 MG, UNK
     Route: 042
     Dates: start: 20101228, end: 20110419
  3. DILTIAZEM [Concomitant]
     Dosage: UNK
     Route: 048
  4. KEPPRA [Concomitant]
     Indication: EPILEPSY
     Dosage: UNK
     Route: 048

REACTIONS (1)
  - ENDOCARDITIS BACTERIAL [None]
